FAERS Safety Report 7944528-6 (Version None)
Quarter: 2011Q4

REPORT INFORMATION
  Report Type: 
  Country: None (occurrence: None)
  Receive Date: 20111122
  Receipt Date: 20110715
  Transmission Date: 20120403
  Serious: No
  Sender: FDA-Public Use
  Company Number: PHHY2011US64411

PATIENT
  Age: 49 Year
  Sex: Female
  Weight: 56.7 kg

DRUGS (1)
  1. GILENYA [Suspect]
     Dosage: 0.5MG, DAILY, ORAL
     Route: 048
     Dates: start: 20110712

REACTIONS (1)
  - FATIGUE [None]
